FAERS Safety Report 14204882 (Version 1)
Quarter: 2017Q4

REPORT INFORMATION
  Report Type: Spontaneous
  Country: US (occurrence: US)
  Receive Date: 20171118
  Receipt Date: 20171118
  Transmission Date: 20180321
  Serious: Yes (Death, Hospitalization)
  Sender: FDA-Public Use
  Company Number: None

PATIENT
  Age: 36 Year
  Sex: Male
  Weight: 99 kg

DRUGS (2)
  1. KRATOM (MITRAGYNA) [Suspect]
     Active Substance: MITRAGYNINE\HERBALS
     Indication: ANXIETY
  2. LAMICTAL [Concomitant]
     Active Substance: LAMOTRIGINE

REACTIONS (7)
  - Pulse absent [None]
  - Respiratory arrest [None]
  - Overdose [None]
  - Drug dependence [None]
  - Marital problem [None]
  - Generalised tonic-clonic seizure [None]
  - Brain death [None]

NARRATIVE: CASE EVENT DATE: 20131214
